FAERS Safety Report 14970968 (Version 3)
Quarter: 2019Q2

REPORT INFORMATION
  Report Type: Spontaneous
  Country: US (occurrence: US)
  Receive Date: 20180604
  Receipt Date: 20190515
  Transmission Date: 20190711
  Serious: No
  Sender: FDA-Public Use
  Company Number: US-PFIZER INC-2018224741

PATIENT
  Age: 54 Year
  Sex: Female

DRUGS (1)
  1. XELJANZ [Suspect]
     Active Substance: TOFACITINIB CITRATE
     Indication: RHEUMATOID ARTHRITIS
     Dosage: 5 MG, DAILY
     Route: 048

REACTIONS (2)
  - Product use issue [Unknown]
  - Gastrooesophageal reflux disease [Recovered/Resolved]
